APPROVED DRUG PRODUCT: DIFLUCAN
Active Ingredient: FLUCONAZOLE
Strength: 200MG/5ML
Dosage Form/Route: FOR SUSPENSION;ORAL
Application: N020090 | Product #002 | TE Code: AB
Applicant: PFIZER CHEMICALS DIV PFIZER INC
Approved: Dec 23, 1993 | RLD: Yes | RS: Yes | Type: RX